FAERS Safety Report 24185852 (Version 1)
Quarter: 2024Q3

REPORT INFORMATION
  Report Type: Spontaneous
  Country: US (occurrence: US)
  Receive Date: 20240807
  Receipt Date: 20240807
  Transmission Date: 20241016
  Serious: No
  Sender: PRINSTON PHARMACEUTICAL
  Company Number: US-PRINSTON PHARMACEUTICAL INC.-2023PRN00526

PATIENT
  Age: 74 Year
  Sex: Female
  Weight: 123.4 kg

DRUGS (5)
  1. CLONAZEPAM [Suspect]
     Active Substance: CLONAZEPAM
     Indication: Post-traumatic stress disorder
     Dosage: 0.5 MG, UP TO 2X/DAY AS NEEDED (USUALLY 1X/DAY)
     Dates: start: 202309, end: 20231007
  2. CLONAZEPAM [Suspect]
     Active Substance: CLONAZEPAM
     Indication: Panic attack
     Dosage: 0.5 MG, UP TO 2X/DAY AS NEEDED (USUALLY 1X/DAY)
     Route: 048
     Dates: start: 20231008, end: 20231009
  3. CLONAZEPAM [Suspect]
     Active Substance: CLONAZEPAM
     Indication: Anxiety
  4. NEXIUM [Concomitant]
     Active Substance: ESOMEPRAZOLE MAGNESIUM
     Dosage: UNK
  5. UNSPECIFIED INGREDIENT [Concomitant]
     Active Substance: UNSPECIFIED INGREDIENT
     Dosage: UNK

REACTIONS (9)
  - Abdominal pain upper [Recovering/Resolving]
  - Drug ineffective [Recovered/Resolved]
  - Oral discomfort [Recovered/Resolved]
  - Sensation of foreign body [Recovered/Resolved]
  - Agitation [Unknown]
  - Pain [Unknown]
  - Diarrhoea [Recovering/Resolving]
  - Product taste abnormal [Recovered/Resolved]
  - Product quality issue [Unknown]

NARRATIVE: CASE EVENT DATE: 20231008
